FAERS Safety Report 9197598 (Version 2)
Quarter: 2013Q2

REPORT INFORMATION
  Report Type: Report from Study
  Country: HU (occurrence: HU)
  Receive Date: 20130328
  Receipt Date: 20130417
  Transmission Date: 20140414
  Serious: Yes (Hospitalization)
  Sender: FDA-Public Use
  Company Number: HU-GLAXOSMITHKLINE-B0878596A

PATIENT
  Age: 54 Year
  Sex: Male

DRUGS (6)
  1. SERETIDE DISKUS [Suspect]
     Indication: CHRONIC OBSTRUCTIVE PULMONARY DISEASE
     Dosage: 1PUFF TWICE PER DAY
     Route: 055
     Dates: start: 201211, end: 20130110
  2. SPIRIVA [Concomitant]
     Dosage: 18MCG PER DAY
  3. RETAFYLLIN [Concomitant]
     Dosage: 200MG TWICE PER DAY
  4. BERODUAL [Concomitant]
     Dosage: 30ML PER DAY
     Dates: end: 20130314
  5. RAMIPRIL [Concomitant]
     Dosage: 5MG PER DAY
  6. PAXIRASOL [Concomitant]
     Dosage: 2MG PER DAY
     Dates: start: 201212, end: 201212

REACTIONS (5)
  - Pneumonia [Recovered/Resolved]
  - Oropharyngeal pain [Recovering/Resolving]
  - Laryngeal disorder [Recovered/Resolved]
  - Mouth haemorrhage [Recovered/Resolved]
  - Haemoptysis [Recovered/Resolved]
